FAERS Safety Report 20430829 (Version 1)
Quarter: 2022Q1

REPORT INFORMATION
  Report Type: Report from Study
  Country: FR (occurrence: FR)
  Receive Date: 20220204
  Receipt Date: 20220204
  Transmission Date: 20220423
  Serious: Yes (Other)
  Sender: FDA-Public Use
  Company Number: FR-SERVIER-S21006716

PATIENT

DRUGS (5)
  1. PEGASPARGASE [Suspect]
     Active Substance: PEGASPARGASE
     Indication: Acute lymphocytic leukaemia
     Dosage: 1875 IU ON D4
     Route: 042
     Dates: start: 20210415, end: 20210415
  2. TN UNSPECIFIED [Concomitant]
     Indication: Acute lymphocytic leukaemia
     Dosage: 2 MG ON D1, D8, D15, AND D22
     Route: 042
     Dates: start: 20210412, end: 20210503
  3. TN UNSPECIFIED [Concomitant]
     Indication: Acute lymphocytic leukaemia
     Dosage: 110 MG ON D31 TO D34, AND D38 TO D41
     Route: 042
     Dates: start: 20210606, end: 20210612
  4. TN UNSPECIFIED [Concomitant]
     Indication: Acute lymphocytic leukaemia
     Dosage: 14 MG ON D1 TO D7, AND D15 TO D21
     Route: 048
     Dates: start: 20210412, end: 20210502
  5. TN UNSPECIFIED [Concomitant]
     Indication: Acute lymphocytic leukaemia
     Dosage: 280 MG ON D29 TO D42
     Route: 048
     Dates: start: 20210531, end: 20210613

REACTIONS (1)
  - Hemiparesis [Recovered/Resolved]

NARRATIVE: CASE EVENT DATE: 20210614
